FAERS Safety Report 20168980 (Version 2)
Quarter: 2022Q3

REPORT INFORMATION
  Report Type: Spontaneous
  Country: US (occurrence: US)
  Receive Date: 20211210
  Receipt Date: 20220714
  Transmission Date: 20221026
  Serious: Yes (Death, Other)
  Sender: FDA-Public Use
  Company Number: US-SANOFI-00884225

PATIENT
  Age: 82 Year
  Sex: Male

DRUGS (2)
  1. TOUJEO [Suspect]
     Active Substance: INSULIN GLARGINE
     Dosage: UNK
     Route: 065
  2. TOUJEO MAX [Suspect]
     Active Substance: INSULIN GLARGINE
     Dosage: UNK
     Route: 065

REACTIONS (2)
  - Hepatic failure [Fatal]
  - Renal failure [Fatal]

NARRATIVE: CASE EVENT DATE: 20210815
